FAERS Safety Report 12756936 (Version 10)
Quarter: 2017Q1

REPORT INFORMATION
  Report Type: Report from Study
  Country: BR (occurrence: BR)
  Receive Date: 20160917
  Receipt Date: 20170209
  Transmission Date: 20170428
  Serious: Yes (Hospitalization, Other)
  Sender: FDA-Public Use
  Company Number: PHHY2016BR085867

PATIENT
  Sex: Male
  Weight: 90 kg

DRUGS (4)
  1. EXJADE [Suspect]
     Active Substance: DEFERASIROX
     Dosage: 2 DF, QD (1 DISPERSIBLE TABLET OF 500MG IN THE MORNING)
     Route: 048
  2. CICLOSPORIN [Suspect]
     Active Substance: CYCLOSPORINE
     Indication: PLATELET COUNT DECREASED
     Route: 065
  3. CICLOSPORIN [Suspect]
     Active Substance: CYCLOSPORINE
     Indication: BONE MARROW DISORDER
     Dosage: 2 DF, BID (2 DF IN THE MORNING AND 2 DF AT NIGHT)
     Route: 065
  4. EXJADE [Suspect]
     Active Substance: DEFERASIROX
     Indication: BONE MARROW FAILURE
     Dosage: 1500 MG, QD (3 TABLET FO 500 MG)
     Route: 065

REACTIONS (28)
  - Condition aggravated [Unknown]
  - Gait disturbance [Unknown]
  - Haematuria [Unknown]
  - Platelet count decreased [Unknown]
  - Tooth disorder [Unknown]
  - Haematemesis [Unknown]
  - Malaise [Unknown]
  - Haematochezia [Unknown]
  - Loose tooth [Unknown]
  - Product use issue [Unknown]
  - Gingival swelling [Recovering/Resolving]
  - Skin discolouration [Unknown]
  - Weight increased [Unknown]
  - Nervousness [Unknown]
  - Fatigue [Unknown]
  - Disease recurrence [Unknown]
  - Toothache [Unknown]
  - Gingival bleeding [Unknown]
  - Pain in extremity [Unknown]
  - Lymphadenopathy [Unknown]
  - Spinal disorder [Unknown]
  - Bone marrow disorder [Unknown]
  - Headache [Unknown]
  - Asthenia [Unknown]
  - Serum ferritin increased [Unknown]
  - Inappropriate schedule of drug administration [Unknown]
  - Anal infection [Unknown]
  - Pyrexia [Unknown]
